FAERS Safety Report 9933170 (Version 1)
Quarter: 2014Q1

REPORT INFORMATION
  Report Type: Spontaneous
  Country: US (occurrence: None)
  Receive Date: 20140226
  Receipt Date: 20140226
  Transmission Date: 20141002
  Serious: Yes (Other)
  Sender: FDA-Public Use
  Company Number: 13-05206

PATIENT
  Age: 57 Year
  Sex: Female

DRUGS (4)
  1. ALBUTEROL SULFATE [Suspect]
     Indication: PNEUMONIA
     Dosage: 1 VIAL QID PRN (054)
     Dates: start: 20131011, end: 20131031
  2. ALBUTEROL SULFATE [Suspect]
     Indication: PNEUMONIA
     Dosage: 1 VIAL 6 TIMES DAILY (54)
  3. IPRATROPIUM BROMIDE 0.5MG [Concomitant]
  4. ALBUTEROL SULFATE 3MG [Concomitant]

REACTIONS (1)
  - Pneumonia [None]
